FAERS Safety Report 12716858 (Version 1)
Quarter: 2016Q3

REPORT INFORMATION
  Report Type: Spontaneous
  Country: US (occurrence: US)
  Receive Date: 20160906
  Receipt Date: 20160906
  Transmission Date: 20161109
  Serious: No
  Sender: FDA-Public Use
  Company Number: US-BAYER-2016-171764

PATIENT
  Age: 7 Month
  Sex: Male

DRUGS (1)
  1. MIRALAX [Suspect]
     Active Substance: POLYETHYLENE GLYCOL 3350
     Indication: GASTROINTESTINAL DISORDER
     Dosage: 0.5 DF, UNK; FOR 3 WEEKS
     Route: 048

REACTIONS (3)
  - Circumstance or information capable of leading to medication error [None]
  - Product use issue [None]
  - Incorrect product storage [None]
